FAERS Safety Report 8055795-5 (Version None)
Quarter: 2011Q4

REPORT INFORMATION
  Report Type: 
  Country: None (occurrence: None)
  Receive Date: 20111215
  Receipt Date: 20110824
  Transmission Date: 20120403
  Serious: Yes (Hospitalization)
  Sender: FDA-Public Use
  Company Number: 1000023179

PATIENT
  Age: 80 Year
  Sex: Male

DRUGS (8)
  1. ARICEPT [Concomitant]
  2. PLAVIX [Concomitant]
  3. CLONIDINE [Concomitant]
  4. NAMENDA [Suspect]
     Indication: DEMENTIA
     Dosage: 20 MG (10 MG,2 IN 1 D),ORAL
     Route: 048
     Dates: start: 20100101
  5. NIFEDIPINE [Concomitant]
  6. PEPCID (FAMOTIDINE) (FAMOTIDINE) [Concomitant]
  7. ISOSORBIDE (ISOSORBIDE) (ISOSORBIDE) [Concomitant]
  8. DIOVAN [Concomitant]

REACTIONS (1)
  - GASTROINTESTINAL HAEMORRHAGE [None]
